FAERS Safety Report 5015156-X (Version None)
Quarter: 2006Q2

REPORT INFORMATION
  Report Type: 
  Country: None (occurrence: None)
  Receive Date: 20060530
  Receipt Date: 20060512
  Transmission Date: 20061013
  Serious: Yes (Hospitalization)
  Sender: FDA-Public Use
  Company Number: GXKR2006TN02688

PATIENT
  Age: 31 Year
  Sex: Female

DRUGS (3)
  1. ISONIAZID [Suspect]
     Indication: PULMONARY TUBERCULOSIS
     Dosage: ORAL
     Route: 048
     Dates: start: 19980225
  2. RIFAMPICIN [Concomitant]
  3. ETHAMBUTOL (ETHAMBUTOL) [Concomitant]

REACTIONS (8)
  - BLISTER [None]
  - DERMATITIS BULLOUS [None]
  - GENERALISED ERYTHEMA [None]
  - HEPATIC ENZYME ABNORMAL [None]
  - OEDEMA [None]
  - RASH PAPULAR [None]
  - SKIN BURNING SENSATION [None]
  - SKIN HYPERPIGMENTATION [None]
